FAERS Safety Report 9542219 (Version 2)
Quarter: 2013Q4

REPORT INFORMATION
  Report Type: Spontaneous
  Country: US (occurrence: US)
  Receive Date: 20130923
  Receipt Date: 20131107
  Transmission Date: 20140711
  Serious: Yes (Death)
  Sender: FDA-Public Use
  Company Number: US-B.I. PHARMACEUTICALS,INC./RIDGEFIELD-2013-BI-29491BP

PATIENT
  Age: 87 Year
  Sex: Female
  Weight: 61 kg

DRUGS (8)
  1. PRADAXA [Suspect]
     Indication: ATRIAL FIBRILLATION
     Dosage: 300 MG
     Route: 048
     Dates: start: 2012, end: 20130907
  2. SPRIONOLACTONE [Concomitant]
     Dates: end: 20130907
  3. POTASSIUM CHLORIDE [Concomitant]
     Dates: end: 20130907
  4. SIMVASTATIN [Concomitant]
     Dates: end: 20130907
  5. LISINOPRIL [Concomitant]
     Dates: end: 20130907
  6. MULTIVITAMIN [Concomitant]
     Dates: end: 20130907
  7. NAMENDA [Concomitant]
     Indication: DEMENTIA
     Dates: end: 20130907
  8. FUROSEMIDE [Concomitant]
     Dates: end: 20130907

REACTIONS (3)
  - Death [Fatal]
  - Cystitis [Unknown]
  - Fungal skin infection [Unknown]
